FAERS Safety Report 8599108-9 (Version None)
Quarter: 2012Q3

REPORT INFORMATION
  Report Type: 
  Country: None (occurrence: None)
  Receive Date: 20120816
  Receipt Date: 20120813
  Transmission Date: 20120928
  Serious: Yes (Other)
  Sender: FDA-Public Use
  Company Number: JP-BAYER-2012-080455

PATIENT
  Age: 83 Year
  Sex: Male

DRUGS (4)
  1. ASPIRIN [Suspect]
     Indication: BASILAR ARTERY STENOSIS
     Dosage: UNK
     Route: 048
     Dates: start: 20090901
  2. CATACLOT [Concomitant]
     Indication: BASILAR ARTERY STENOSIS
     Dosage: UNK
     Dates: start: 20090901
  3. CATACLOT [Concomitant]
     Indication: BRAIN STEM INFARCTION
  4. ASPIRIN [Suspect]
     Indication: BRAIN STEM INFARCTION

REACTIONS (1)
  - BASILAR ARTERY STENOSIS [None]
